FAERS Safety Report 10009506 (Version 1)
Quarter: 2014Q1

REPORT INFORMATION
  Report Type: Spontaneous
  Country: US (occurrence: US)
  Receive Date: 20140312
  Receipt Date: 20140312
  Transmission Date: 20141002
  Serious: No
  Sender: FDA-Public Use
  Company Number: US-INCYTE CORPORATION-2012IN001703

PATIENT
  Age: 58 Year
  Sex: Male

DRUGS (13)
  1. JAKAFI [Suspect]
     Dosage: 20 MG, BID
     Route: 048
  2. GABAPENTIN [Concomitant]
  3. ALLOPURINOL [Concomitant]
  4. TAMSULOSIN [Concomitant]
  5. CYMBALTA [Concomitant]
  6. LISINOPRIL [Concomitant]
  7. TESTOSTERONE CIPIONATE [Concomitant]
  8. COLCHICINE [Concomitant]
  9. HYDROCODONE W/APAP [Concomitant]
  10. VALIUM [Concomitant]
  11. SOMA [Concomitant]
  12. PROMETHAZINE [Concomitant]
  13. DIPHENHYDRAMINE [Concomitant]

REACTIONS (1)
  - Hypersomnia [Not Recovered/Not Resolved]
